FAERS Safety Report 14508524 (Version 3)
Quarter: 2018Q4

REPORT INFORMATION
  Report Type: Spontaneous
  Country: US (occurrence: US)
  Receive Date: 20180209
  Receipt Date: 20181016
  Transmission Date: 20190204
  Serious: No
  Sender: FDA-Public Use
  Company Number: US-ELI_LILLY_AND_COMPANY-US201802002917

PATIENT
  Age: 61 Year
  Sex: Female

DRUGS (7)
  1. LANTUS [Concomitant]
     Active Substance: INSULIN GLARGINE
     Indication: TYPE 1 DIABETES MELLITUS
     Dosage: 8 U, EACH MORNING
     Route: 065
  2. ATORVASTATIN [Concomitant]
     Active Substance: ATORVASTATIN
     Indication: PRODUCT USED FOR UNKNOWN INDICATION
     Dosage: 10 MG, DAILY
  3. HUMALOG JUNIOR KWIKPEN [Suspect]
     Active Substance: INSULIN LISPRO
     Indication: LATENT AUTOIMMUNE DIABETES IN ADULTS
     Dosage: UNK UNK, UNKNOWN
     Route: 058
  4. HUMALOG JUNIOR KWIKPEN [Suspect]
     Active Substance: INSULIN LISPRO
     Dosage: UNK UNK, UNKNOWN
     Route: 058
  5. LORAZEPAM. [Concomitant]
     Active Substance: LORAZEPAM
     Indication: PRODUCT USED FOR UNKNOWN INDICATION
     Dosage: 5 MG, EACH EVENING  (NIGHT)
  6. HUMALOG [Suspect]
     Active Substance: INSULIN LISPRO
     Dosage: UNK UNK, PRN (THREE TIMES A DAY)
     Route: 058
  7. HUMALOG [Suspect]
     Active Substance: INSULIN LISPRO
     Indication: LATENT AUTOIMMUNE DIABETES IN ADULTS
     Dosage: UNK UNK, PRN (THREE TIMES A DAY)
     Route: 058
     Dates: start: 201710

REACTIONS (8)
  - Blood glucose increased [Recovering/Resolving]
  - Musculoskeletal stiffness [Recovering/Resolving]
  - Neck pain [Recovering/Resolving]
  - Blood glucose increased [Unknown]
  - Hypokinesia [Unknown]
  - Muscle spasms [Unknown]
  - Blood glucose decreased [Unknown]
  - Accidental underdose [Unknown]

NARRATIVE: CASE EVENT DATE: 20181002
